FAERS Safety Report 4521000-7 (Version None)
Quarter: 2004Q4

REPORT INFORMATION
  Report Type: 
  Country: None (occurrence: None)
  Receive Date: 20041206
  Receipt Date: 20041125
  Transmission Date: 20050328
  Serious: Yes (Hospitalization)
  Sender: FDA-Public Use
  Company Number: 2004-122849-NL

PATIENT
  Age: 73 Year
  Sex: Female

DRUGS (1)
  1. MIRTAZAPINE [Suspect]
     Dosage: DF ORAL
     Route: 048
     Dates: start: 20040309, end: 20040330

REACTIONS (5)
  - ABNORMAL BEHAVIOUR [None]
  - AGITATION [None]
  - DISORIENTATION [None]
  - HYPONATRAEMIA [None]
  - URINARY TRACT INFECTION [None]
